FAERS Safety Report 7486082-1 (Version None)
Quarter: 2011Q2

REPORT INFORMATION
  Report Type: 
  Country: None (occurrence: None)
  Receive Date: 20110516
  Receipt Date: 20110516
  Transmission Date: 20111010
  Serious: No
  Sender: FDA-Public Use
  Company Number: None

PATIENT
  Sex: Female

DRUGS (1)
  1. COPAXONE [Suspect]
     Indication: MULTIPLE SCLEROSIS
     Dosage: 20 MG DAILY SQ
     Route: 058
     Dates: start: 20080319, end: 20101202

REACTIONS (6)
  - INJECTION SITE SWELLING [None]
  - CARDIAC DISORDER [None]
  - INJECTION SITE WARMTH [None]
  - FEELING ABNORMAL [None]
  - PANIC REACTION [None]
  - INJECTION SITE ERYTHEMA [None]
